FAERS Safety Report 4864529-4 (Version None)
Quarter: 2005Q4

REPORT INFORMATION
  Report Type: 
  Country: None (occurrence: None)
  Receive Date: 20051222
  Receipt Date: 20010307
  Transmission Date: 20060501
  Serious: Yes (Hospitalization)
  Sender: FDA-Public Use
  Company Number: US-ROCHE-256206

PATIENT
  Age: 60 Year
  Sex: Male
  Weight: 81 kg

DRUGS (13)
  1. MYCOPHENOLATE MOFETIL [Suspect]
     Route: 042
     Dates: start: 20000516
  2. DACLIZUMAB [Suspect]
     Dosage: THE PATIENT RECEIVED A TOTAL OF 5 DOSES AS PER PROTOCOL.
     Route: 042
     Dates: start: 20000516, end: 20000705
  3. NEORAL [Suspect]
     Route: 048
     Dates: start: 20000516
  4. PREDNISONE 50MG TAB [Suspect]
     Route: 065
     Dates: start: 20001108
  5. ASPIRIN [Concomitant]
     Dates: start: 20000531
  6. SEPTRA [Concomitant]
     Dates: start: 20000531
  7. CALCIUM GLUCONATE [Concomitant]
     Dates: start: 20000531
  8. CALCITRIOL [Concomitant]
     Dates: start: 20000531
  9. MAGNESIUM OXIDE [Concomitant]
     Dates: start: 20000531
  10. PREVACID [Concomitant]
     Dates: start: 20000531
  11. FOSAMAX [Concomitant]
     Dates: start: 20000531
  12. MAGNESIUM OXIDE [Concomitant]
     Dates: start: 20000531
  13. SIMVASTATIN [Concomitant]
     Dates: start: 20000531

REACTIONS (1)
  - PROSTATE CANCER [None]
